FAERS Safety Report 24310370 (Version 1)
Quarter: 2024Q3

REPORT INFORMATION
  Report Type: Spontaneous
  Country: NL (occurrence: NL)
  Receive Date: 20240912
  Receipt Date: 20240912
  Transmission Date: 20241016
  Serious: Yes (Other)
  Sender: ACCORD
  Company Number: None

PATIENT
  Age: 33 Year
  Sex: Male
  Weight: 85 kg

DRUGS (1)
  1. QUETIAPINE [Suspect]
     Active Substance: QUETIAPINE
     Indication: Depression
     Dosage: 2 X PER DAY BEFORE GOING TO SLEEP
     Dates: start: 20240501, end: 20240524

REACTIONS (8)
  - Hallucination, auditory [Recovered/Resolved]
  - Hyperhidrosis [Not Recovered/Not Resolved]
  - Initial insomnia [Not Recovered/Not Resolved]
  - Somnolence [Recovered/Resolved]
  - Fatigue [Recovered/Resolved]
  - Memory impairment [Recovering/Resolving]
  - Palpitations [Recovering/Resolving]
  - Withdrawal syndrome [Not Recovered/Not Resolved]
